FAERS Safety Report 9767473 (Version 3)
Quarter: 2013Q4

REPORT INFORMATION
  Report Type: Spontaneous
  Country: US (occurrence: US)
  Receive Date: 20131217
  Receipt Date: 20131226
  Transmission Date: 20140711
  Serious: Yes (Hospitalization)
  Sender: FDA-Public Use
  Company Number: US-DENDREON CORPORATION-2013PROUSA03353

PATIENT
  Age: 65 Year
  Sex: Male
  Weight: 81.18 kg

DRUGS (3)
  1. PROVENGE [Suspect]
     Indication: PROSTATE CANCER METASTATIC
     Dosage: 250 ML, SINGLE
     Route: 042
     Dates: start: 20131101, end: 20131101
  2. PROVENGE [Suspect]
     Dosage: 250 ML, SINGLE
     Route: 042
     Dates: start: 20131115, end: 20131115
  3. ELIGARD [Concomitant]
     Indication: PRODUCT USED FOR UNKNOWN INDICATION

REACTIONS (6)
  - Renal failure acute [Recovered/Resolved]
  - Bladder outlet obstruction [Recovered/Resolved]
  - Hydronephrosis [Recovered/Resolved]
  - Hypertension [Unknown]
  - Haematuria [Recovering/Resolving]
  - Anaemia [Unknown]
